FAERS Safety Report 7151771-5 (Version None)
Quarter: 2010Q4

REPORT INFORMATION
  Report Type: 
  Country: None (occurrence: None)
  Receive Date: 20101210
  Receipt Date: 20101125
  Transmission Date: 20110411
  Serious: Yes (Disabling)
  Sender: FDA-Public Use
  Company Number: DK-AMGEN-DNKSP2010007885

PATIENT

DRUGS (4)
  1. ENBREL [Suspect]
     Indication: PRODUCT USED FOR UNKNOWN INDICATION
     Dosage: 50 MG, WEEKLY
     Dates: start: 20090422, end: 20100510
  2. ENBREL [Suspect]
     Dosage: 75 MG, WEEKLY
     Dates: start: 20080812, end: 20090421
  3. ENBREL [Suspect]
     Dosage: 50 MG, 2X/WEEK
     Dates: start: 20080610, end: 20080811
  4. ENBREL [Suspect]
     Dosage: UNK
     Dates: start: 20050901, end: 20070129

REACTIONS (2)
  - CENTRAL NERVOUS SYSTEM LESION [None]
  - DIZZINESS [None]
